FAERS Safety Report 6260487-9 (Version None)
Quarter: 2009Q3

REPORT INFORMATION
  Report Type: 
  Country: None (occurrence: None)
  Receive Date: 20090706
  Receipt Date: 20090225
  Transmission Date: 20100115
  Serious: Yes (Life-Threatening, Hospitalization)
  Sender: FDA-Public Use
  Company Number: FR-GUERBET-20090046

PATIENT
  Age: 61 Year
  Sex: Female
  Weight: 100 kg

DRUGS (1)
  1. HEXABRIX [Suspect]
     Indication: SPINAL MYELOGRAM
     Dosage: 12, ML MILLILITRE (S), 1, 1, TOTAL INTRATHECAL
     Route: 037
     Dates: start: 20090224, end: 20090224

REACTIONS (12)
  - ABDOMINAL DISTENSION [None]
  - FORMICATION [None]
  - HYPERTHERMIA [None]
  - MEDICATION ERROR [None]
  - MYOCLONUS [None]
  - NERVOUS SYSTEM DISORDER [None]
  - OFF LABEL USE [None]
  - PARAESTHESIA [None]
  - PRURITUS [None]
  - RASH [None]
  - SOMNOLENCE [None]
  - STATUS EPILEPTICUS [None]
